FAERS Safety Report 24923664 (Version 4)
Quarter: 2025Q1

REPORT INFORMATION
  Report Type: Spontaneous
  Country: US (occurrence: US)
  Receive Date: 20250204
  Receipt Date: 20250218
  Transmission Date: 20250408
  Serious: Yes (Life-Threatening)
  Sender: MYLAN
  Company Number: US-MYLANLABS-2025M1009571

PATIENT
  Sex: Male

DRUGS (1)
  1. BUPRENORPHINE AND NALOXONE SUBLINGUAL FILM [Suspect]
     Active Substance: BUPRENORPHINE HYDROCHLORIDE\NALOXONE HYDROCHLORIDE
     Indication: Product used for unknown indication
     Dosage: UNK, TID (DISSOLVE ON THE TONGUE THREE TIMES DAILY)
     Route: 060

REACTIONS (7)
  - Brief resolved unexplained event [Unknown]
  - Injury [Unknown]
  - Product complaint [Unknown]
  - Suspected counterfeit product [Unknown]
  - Suspected product contamination [Unknown]
  - Skin infection [Unknown]
  - Scar [Unknown]
